FAERS Safety Report 17256926 (Version 1)
Quarter: 2020Q1

REPORT INFORMATION
  Report Type: Spontaneous
  Country: CA (occurrence: CA)
  Receive Date: 20200109
  Receipt Date: 20200109
  Transmission Date: 20200409
  Serious: Yes (Disabling)
  Sender: FDA-Public Use
  Company Number: None

PATIENT
  Age: 64 Year
  Sex: Female
  Weight: 80.55 kg

DRUGS (1)
  1. CIPRODEX [Suspect]
     Active Substance: CIPROFLOXACIN HYDROCHLORIDE\DEXAMETHASONE
     Indication: EAR PAIN
     Dosage: ?          QUANTITY:7.5 DROP(S);?
     Route: 001
     Dates: start: 20200102, end: 20200105

REACTIONS (1)
  - Deafness [None]

NARRATIVE: CASE EVENT DATE: 20200103
